FAERS Safety Report 6580640-4 (Version None)
Quarter: 2010Q1

REPORT INFORMATION
  Report Type: 
  Country: None (occurrence: None)
  Receive Date: 20100212
  Receipt Date: 20100121
  Transmission Date: 20100710
  Serious: Yes (Hospitalization)
  Sender: FDA-Public Use
  Company Number: US-JNJFOC-20100205367

PATIENT
  Age: 93 Year
  Sex: Female

DRUGS (3)
  1. EXTRA STRENGTH TYLENOL [Suspect]
     Indication: INFLAMMATION
     Dosage: 2 TO 3 PILLS, 3 TO 4 TIMES A WEEK
     Route: 048
  2. EXTRA STRENGTH TYLENOL [Suspect]
     Indication: ARTHRITIS
     Dosage: 2 TO 3 PILLS, 3 TO 4 TIMES A WEEK
     Route: 048
  3. ST. JOSEPH ASPIRIN ENTERIC COATED [Suspect]
     Indication: CARDIAC DISORDER
     Route: 048

REACTIONS (6)
  - BLOOD ELECTROLYTES INCREASED [None]
  - BLOOD PRESSURE DECREASED [None]
  - BLOOD SODIUM DECREASED [None]
  - DEHYDRATION [None]
  - DIARRHOEA [None]
  - PRODUCT QUALITY ISSUE [None]
